FAERS Safety Report 24451007 (Version 1)
Quarter: 2024Q4

REPORT INFORMATION
  Report Type: Spontaneous
  Country: PH (occurrence: None)
  Receive Date: 20241016
  Receipt Date: 20241016
  Transmission Date: 20250115
  Serious: Yes (Other)
  Sender: Public
  Company Number: None

PATIENT
  Age: 31 Year
  Sex: Female
  Weight: 57 kg

DRUGS (2)
  1. LECITHIN [Suspect]
     Active Substance: LECITHIN
     Indication: Skin cosmetic procedure
     Dates: start: 20240929
  2. PROBIOTICS NOS [Concomitant]
     Active Substance: PROBIOTICS NOS

REACTIONS (1)
  - Multiple allergies [None]

NARRATIVE: CASE EVENT DATE: 20241010
